FAERS Safety Report 5132996-7 (Version None)
Quarter: 2006Q4

REPORT INFORMATION
  Report Type: 
  Country: None (occurrence: None)
  Receive Date: 20061017
  Receipt Date: 20061004
  Transmission Date: 20070319
  Serious: Yes (Other)
  Sender: FDA-Public Use
  Company Number: GXKR2006GB06183

PATIENT
  Sex: Male

DRUGS (5)
  1. PAROXETINE [Suspect]
     Indication: DEPRESSION
     Dosage: SEE IMAGE
     Dates: start: 20020501, end: 20020901
  2. PAROXETINE [Suspect]
     Indication: DEPRESSION
     Dosage: SEE IMAGE
     Dates: start: 20020901
  3. ZOPICLONE (ZOPICLONE) TABLET [Suspect]
     Dosage: SEE IMAGE
     Route: 048
     Dates: start: 20030801
  4. ALCOHOL (ETHANOL) [Suspect]
     Dosage: ORAL
     Route: 048
  5. DOTHIEPIN HYDROCHLORIDE [Concomitant]

REACTIONS (9)
  - ALCOHOLIC [None]
  - DRUG DOSE OMISSION [None]
  - HEADACHE [None]
  - HOMICIDE [None]
  - HYPERHIDROSIS [None]
  - NAUSEA [None]
  - NIGHTMARE [None]
  - SLEEP WALKING [None]
  - TREMOR [None]
